FAERS Safety Report 9707200 (Version 1)
Quarter: 2013Q4

REPORT INFORMATION
  Report Type: Report from Study
  Country: CN (occurrence: CN)
  Receive Date: 20131125
  Receipt Date: 20131125
  Transmission Date: 20140711
  Serious: Yes (Other)
  Sender: FDA-Public Use
  Company Number: CN-ROCHE-1309222

PATIENT
  Sex: 0

DRUGS (6)
  1. CAPECITABINE [Suspect]
     Indication: GASTRIC CANCER
     Dosage: TRIAL GROUP RECEIVED CAPECITABINE FOR 14 CONSECUTIVE DAYS?CONTROL GROUP RECEIVED CAPECITABINE FOR 14
     Route: 065
  2. CAPECITABINE [Suspect]
     Indication: METASTASES TO PERITONEUM
  3. PACLITAXEL [Suspect]
     Indication: GASTRIC CANCER
     Dosage: DAILY ON DAYS 1 AND 8.
     Route: 042
  4. PACLITAXEL [Suspect]
     Indication: METASTASES TO PERITONEUM
  5. ENDOSTAR [Suspect]
     Indication: GASTRIC CANCER
     Dosage: DAILY ON DAYS 1-14, REPEAT EVERY 21 DAYS IN TRIAL GROUP ONLY
     Route: 042
  6. ENDOSTAR [Suspect]
     Indication: METASTASES TO PERITONEUM

REACTIONS (1)
  - Haematotoxicity [Unknown]
